FAERS Safety Report 9458967 (Version 1)
Quarter: 2013Q3

REPORT INFORMATION
  Report Type: Spontaneous
  Country: DK (occurrence: FR)
  Receive Date: 20130814
  Receipt Date: 20130814
  Transmission Date: 20140515
  Serious: Yes (Other)
  Sender: FDA-Public Use
  Company Number: FR-FRI-1000047770

PATIENT
  Age: 62 Year
  Sex: Male

DRUGS (12)
  1. ESCITALOPRAM [Suspect]
     Indication: DEPRESSIVE SYMPTOM
     Dosage: 10 MG
     Route: 048
     Dates: start: 20130610, end: 20130704
  2. LOXEN [Suspect]
     Indication: HYPERTENSION
     Dosage: 2 DF
     Route: 048
     Dates: start: 20130610
  3. HYPERIUM [Suspect]
     Indication: HYPERTENSION
     Dosage: 2 DF
     Route: 048
     Dates: start: 20130614
  4. PROPRANOLOL [Suspect]
     Indication: HYPERTENSION
     Dosage: 40 MG
     Route: 048
     Dates: start: 20130618, end: 20130704
  5. SOLUPRED [Suspect]
     Indication: METASTASES TO CENTRAL NERVOUS SYSTEM
     Dosage: 160 MG
     Route: 048
     Dates: start: 20130610
  6. ATARAX [Suspect]
     Indication: ANXIETY
     Dosage: 25 MG
     Route: 048
     Dates: start: 20130614, end: 20130704
  7. PARACETAMOL [Concomitant]
     Indication: PAIN
     Route: 048
     Dates: end: 20130704
  8. NEBIVOLOL [Concomitant]
     Indication: HYPERTENSION
     Dosage: 5 MG
     Route: 048
     Dates: end: 20130706
  9. ESOMEPRAZOLE [Concomitant]
     Indication: GASTRODUODENAL ULCER
     Dosage: 40 MG
     Route: 048
  10. IPERTEN [Concomitant]
     Dosage: 10 MG
  11. TAHOR [Concomitant]
     Dosage: 40 MG
  12. DAFALGAN [Concomitant]

REACTIONS (2)
  - Cholestasis [Recovered/Resolved]
  - Hepatocellular injury [Recovered/Resolved]
